FAERS Safety Report 18204326 (Version 2)
Quarter: 2020Q3

REPORT INFORMATION
  Report Type: Spontaneous
  Country: JP (occurrence: JP)
  Receive Date: 20200828
  Receipt Date: 20200921
  Transmission Date: 20201103
  Serious: Yes (Hospitalization, Other)
  Sender: FDA-Public Use
  Company Number: JP-UCBSA-2020033747

PATIENT
  Age: 80 Year
  Sex: Female

DRUGS (2)
  1. PROMAC [POLAPREZINC] [Interacting]
     Active Substance: POLAPREZINC
     Indication: GASTRIC ULCER
     Dosage: 1 DF, BID
     Route: 048
  2. XYZAL [Suspect]
     Active Substance: LEVOCETIRIZINE DIHYDROCHLORIDE
     Indication: RASH
     Dosage: 5 MG, QD
     Route: 048

REACTIONS (6)
  - Inhibitory drug interaction [Unknown]
  - Gastric ulcer [Unknown]
  - Product use issue [Unknown]
  - Rash [Recovered/Resolved]
  - Taste disorder [Unknown]
  - Product use in unapproved indication [Unknown]
